FAERS Safety Report 7838072-4 (Version None)
Quarter: 2011Q4

REPORT INFORMATION
  Report Type: 
  Country: None (occurrence: None)
  Receive Date: 20111024
  Receipt Date: 20111004
  Transmission Date: 20120403
  Serious: No
  Sender: FDA-Public Use
  Company Number: US-ABBOTT-11P-163-0861599-00

PATIENT
  Sex: Female
  Weight: 85.806 kg

DRUGS (7)
  1. NORETHINDRONE ACETATE [Concomitant]
     Indication: HORMONE REPLACEMENT THERAPY
  2. SOMA [Concomitant]
     Indication: BACK PAIN
  3. PROMETHAZINE [Concomitant]
     Indication: NAUSEA
  4. LUPRON DEPOT [Suspect]
     Indication: DYSMENORRHOEA
     Dates: start: 20110901
  5. TRAMADOL HCL [Concomitant]
     Indication: BACK PAIN
  6. HYDROCHLOROTHIAZIDE [Concomitant]
     Indication: PRODUCT USED FOR UNKNOWN INDICATION
  7. FLEXERIL [Concomitant]
     Indication: BACK PAIN

REACTIONS (4)
  - HOT FLUSH [None]
  - CRYING [None]
  - MOOD ALTERED [None]
  - DEPRESSION [None]
